FAERS Safety Report 24068663 (Version 1)
Quarter: 2024Q3

REPORT INFORMATION
  Report Type: Spontaneous
  Country: CH (occurrence: CH)
  Receive Date: 20240710
  Receipt Date: 20240710
  Transmission Date: 20241016
  Serious: No
  Sender: ROCHE
  Company Number: CH-ROCHE-3552755

PATIENT
  Age: 16 Year
  Sex: Female

DRUGS (2)
  1. ENTRECTINIB [Suspect]
     Active Substance: ENTRECTINIB
     Indication: Soft tissue sarcoma
     Dosage: OF THREE CYCLES
     Route: 065
  2. ENTRECTINIB [Suspect]
     Active Substance: ENTRECTINIB
     Indication: Spindle cell sarcoma

REACTIONS (1)
  - Hallucination [Unknown]
